FAERS Safety Report 6783887-7 (Version None)
Quarter: 2010Q2

REPORT INFORMATION
  Report Type: 
  Country: None (occurrence: None)
  Receive Date: 20100622
  Receipt Date: 20100611
  Transmission Date: 20101027
  Serious: Yes (Other)
  Sender: FDA-Public Use
  Company Number: US-BAXTER-2010BH015892

PATIENT
  Sex: Female

DRUGS (4)
  1. IMMUNE GLOBULIN INTRAVENOUS (HUMAN) [Suspect]
     Indication: PROPHYLAXIS
     Route: 042
  2. IMMUNE GLOBULIN INTRAVENOUS (HUMAN) [Suspect]
     Indication: OFF LABEL USE
     Route: 042
  3. IMMUNE GLOBULIN INTRAVENOUS (HUMAN) [Suspect]
     Route: 042
  4. IMMUNE GLOBULIN INTRAVENOUS (HUMAN) [Suspect]
     Route: 042

REACTIONS (1)
  - DRUG EXPOSURE DURING PREGNANCY [None]
